FAERS Safety Report 25743554 (Version 1)
Quarter: 2025Q3

REPORT INFORMATION
  Report Type: Spontaneous
  Country: US (occurrence: US)
  Receive Date: 20250831
  Receipt Date: 20250831
  Transmission Date: 20251020
  Serious: Yes (Life-Threatening, Hospitalization, Other)
  Sender: CIPLA
  Company Number: US-MLMSERVICE-20250811-PI609756-00327-1

PATIENT

DRUGS (2)
  1. LEVETIRACETAM [Suspect]
     Active Substance: LEVETIRACETAM
     Route: 065
  2. VALPROIC ACID [Suspect]
     Active Substance: VALPROIC ACID
     Route: 065

REACTIONS (5)
  - Mental status changes [Recovering/Resolving]
  - Sinus tachycardia [Recovering/Resolving]
  - Toxicity to various agents [Recovering/Resolving]
  - Intentional overdose [Unknown]
  - Suicide attempt [Unknown]
